FAERS Safety Report 8111357-2 (Version None)
Quarter: 2012Q1

REPORT INFORMATION
  Report Type: 
  Country: None (occurrence: None)
  Receive Date: 20120203
  Receipt Date: 20110927
  Transmission Date: 20120608
  Serious: No
  Sender: FDA-Public Use
  Company Number: US-GLAXOSMITHKLINE-A0946203A

PATIENT
  Age: 54 Year
  Sex: Female

DRUGS (5)
  1. LASIX [Concomitant]
  2. CYMBALTA [Concomitant]
  3. VYVANSE [Concomitant]
  4. LAMOTRIGINE [Suspect]
     Indication: MOOD SWINGS
     Dosage: 100MG TWICE PER DAY
     Route: 048
  5. THYROID MEDICATION [Concomitant]

REACTIONS (2)
  - MOOD SWINGS [None]
  - ABNORMAL BEHAVIOUR [None]
